FAERS Safety Report 5850505-1 (Version None)
Quarter: 2008Q3

REPORT INFORMATION
  Report Type: 
  Country: None (occurrence: None)
  Receive Date: 20080819
  Receipt Date: 20080807
  Transmission Date: 20090109
  Serious: Yes (Hospitalization)
  Sender: FDA-Public Use
  Company Number: JP-PFIZER INC-2008066806

PATIENT
  Age: 60 Year
  Sex: Male

DRUGS (4)
  1. GABAPEN [Suspect]
     Indication: CANCER PAIN
     Dosage: DAILY DOSE:600MG
     Route: 048
     Dates: start: 20080715, end: 20080730
  2. FENTANYL-25 [Suspect]
     Indication: CANCER PAIN
     Route: 062
     Dates: start: 20080729, end: 20080730
  3. FENTANYL-25 [Suspect]
     Dosage: DAILY DOSE:5MG
     Route: 062
  4. OXINORM [Concomitant]

REACTIONS (2)
  - RESPIRATORY DEPRESSION [None]
  - SOMNOLENCE [None]
